FAERS Safety Report 11454708 (Version 2)
Quarter: 2015Q3

REPORT INFORMATION
  Report Type: Spontaneous
  Country: US (occurrence: US)
  Receive Date: 20150831
  Receipt Date: 20150903
  Transmission Date: 20151125
  Serious: No
  Sender: FDA-Public Use
  Company Number: US-ELI_LILLY_AND_COMPANY-US201005000571

PATIENT
  Age: 59 Year
  Sex: Female

DRUGS (14)
  1. HUMALOG [Suspect]
     Active Substance: INSULIN LISPRO
     Dosage: 70 U, EACH EVENING
     Route: 058
     Dates: start: 2004
  2. FUROSEMIDE. [Concomitant]
     Active Substance: FUROSEMIDE
  3. ACCUPRIL [Concomitant]
     Active Substance: QUINAPRIL HYDROCHLORIDE
  4. REGLAN [Concomitant]
     Active Substance: METOCLOPRAMIDE HYDROCHLORIDE
  5. HUMALOG [Suspect]
     Active Substance: INSULIN LISPRO
     Route: 058
     Dates: end: 2004
  6. METOPROLOL [Concomitant]
     Active Substance: METOPROLOL
  7. CADUET [Concomitant]
     Active Substance: AMLODIPINE BESYLATE\ATORVASTATIN CALCIUM
  8. ALLOPURINOL. [Concomitant]
     Active Substance: ALLOPURINOL
  9. NEXIUM /USA/ [Concomitant]
  10. POTASSIUM [Concomitant]
     Active Substance: POTASSIUM
  11. CYMBALTA [Suspect]
     Active Substance: DULOXETINE HYDROCHLORIDE
     Indication: NEUROPATHY PERIPHERAL
     Dosage: UNK, DAILY (1/D)
     Route: 048
     Dates: start: 201003
  12. HUMALOG [Suspect]
     Active Substance: INSULIN LISPRO
     Dosage: 80 U, EACH MORNING
     Route: 058
     Dates: start: 2004
  13. DIOVAN HCT [Concomitant]
     Active Substance: HYDROCHLOROTHIAZIDE\VALSARTAN
  14. GLUCOPHAGE /USA/ [Concomitant]

REACTIONS (6)
  - Tardive dyskinesia [Not Recovered/Not Resolved]
  - Limb discomfort [Not Recovered/Not Resolved]
  - Dyskinesia [Not Recovered/Not Resolved]
  - Swollen tongue [Not Recovered/Not Resolved]
  - Pain in extremity [Recovered/Resolved]
  - Glossodynia [Not Recovered/Not Resolved]

NARRATIVE: CASE EVENT DATE: 2008
